FAERS Safety Report 8211645-5 (Version None)
Quarter: 2012Q1

REPORT INFORMATION
  Report Type: 
  Country: None (occurrence: None)
  Receive Date: 20120315
  Receipt Date: 20120312
  Transmission Date: 20120608
  Serious: Yes (Hospitalization, Other)
  Sender: FDA-Public Use
  Company Number: US-PFIZER INC-2012066069

PATIENT
  Age: 9 Year
  Sex: Female

DRUGS (7)
  1. METHYLPEDNISOLONE SODIUM SUCCINATE [Suspect]
     Dosage: 2 MG/KG EVERY 12 HOURS
     Route: 042
  2. CYCLOPHOSPHAMIDE [Concomitant]
     Route: 042
  3. RANITIDINE [Concomitant]
  4. METHYLPREDNISOLONE SODIUM SUCCINATE [Suspect]
     Dosage: 1 MG/KG EVERY 12 HOURS
     Route: 042
  5. HYDROXYCHLOROQUINE SULFATE [Suspect]
  6. FUROSEMIDE [Suspect]
     Route: 042
  7. PREDNISONE TAB [Suspect]
     Dosage: 30 MG, 2X/DAY
     Route: 048

REACTIONS (1)
  - STEVENS-JOHNSON SYNDROME [None]
